FAERS Safety Report 7605830-0 (Version None)
Quarter: 2011Q3

REPORT INFORMATION
  Report Type: 
  Country: None (occurrence: None)
  Receive Date: 20110705
  Receipt Date: 20110617
  Transmission Date: 20111222
  Serious: Yes (Other)
  Sender: FDA-Public Use
  Company Number: TPA2011A03244

PATIENT
  Age: 73 Year
  Sex: Female

DRUGS (1)
  1. ACTOPLUS MET [Suspect]
     Dosage: 15 MG / 500 MG, BID, PER ORAL
     Route: 048
     Dates: start: 20070401

REACTIONS (1)
  - BLADDER CANCER [None]
